FAERS Safety Report 7905113-5 (Version None)
Quarter: 2011Q4

REPORT INFORMATION
  Report Type: 
  Country: None (occurrence: None)
  Receive Date: 20111109
  Receipt Date: 20111101
  Transmission Date: 20120403
  Serious: Yes (Other)
  Sender: FDA-Public Use
  Company Number: CHPA2011US15261

PATIENT
  Age: 107 Year
  Sex: Female

DRUGS (3)
  1. LIDODERM [Concomitant]
     Indication: PAIN
     Dosage: UNK
     Route: 062
  2. VOLTAREN [Suspect]
     Dosage: SMALL AMOUNT, 2-3 TIMES DAILY
     Route: 061
     Dates: start: 20111023, end: 20111030
  3. VOLTAREN [Suspect]
     Indication: MUSCULOSKELETAL PAIN
     Dosage: UNK, UNK
     Route: 061

REACTIONS (7)
  - RASH MACULAR [None]
  - OFF LABEL USE [None]
  - PRURITUS [None]
  - DRUG ADMINISTERED AT INAPPROPRIATE SITE [None]
  - BLISTER INFECTED [None]
  - BLISTER [None]
  - ERYTHEMA [None]
